FAERS Safety Report 9360728 (Version 4)
Quarter: 2014Q1

REPORT INFORMATION
  Report Type: Report from Study
  Country: FR (occurrence: FR)
  Receive Date: 20130621
  Receipt Date: 20140108
  Transmission Date: 20141002
  Serious: Yes (Hospitalization)
  Sender: FDA-Public Use
  Company Number: FR-SANOFI-AVENTIS-2013SA061608

PATIENT
  Age: 79 Year
  Sex: Male

DRUGS (11)
  1. CABAZITAXEL [Suspect]
     Indication: PROSTATE CANCER METASTATIC
     Route: 042
     Dates: start: 20121207, end: 20121207
  2. CABAZITAXEL [Suspect]
     Indication: PROSTATE CANCER METASTATIC
     Route: 042
     Dates: start: 20130524, end: 20130524
  3. PREDNISONE [Suspect]
     Indication: PROSTATE CANCER METASTATIC
     Route: 048
     Dates: start: 20121207, end: 20130613
  4. GOSERELIN [Concomitant]
     Route: 058
     Dates: start: 201101
  5. KEAL [Concomitant]
     Indication: PROPHYLAXIS
     Route: 048
     Dates: start: 20121207
  6. MOTILIUM [Concomitant]
     Indication: PROPHYLAXIS
     Route: 048
     Dates: start: 20121207
  7. EMLAPATCH [Concomitant]
     Indication: PROPHYLAXIS
     Route: 062
     Dates: start: 20121207
  8. PARACETAMOL [Concomitant]
     Route: 048
     Dates: start: 20121220
  9. MOVICOL [Concomitant]
     Route: 048
     Dates: start: 20130111
  10. PANTOPRAZOLE [Concomitant]
     Indication: PROPHYLAXIS
     Route: 048
     Dates: start: 20121207
  11. CARBOSYMAG /FRA/ [Concomitant]
     Route: 048
     Dates: start: 20130227

REACTIONS (1)
  - Recall phenomenon [Recovered/Resolved]
